FAERS Safety Report 8818572 (Version 1)
Quarter: 2012Q4

REPORT INFORMATION
  Report Type: 
  Country: US (occurrence: US)
  Receive Date: 20121001
  Receipt Date: 20121001
  Transmission Date: 20130627
  Serious: Yes (Other)
  Sender: FDA-Public Use
  Company Number: US-PFIZER INC-2012241917

PATIENT
  Age: 53 Year
  Sex: Female
  Weight: 51.25 kg

DRUGS (9)
  1. EFFEXOR [Suspect]
     Indication: DEPRESSION
     Dosage: UNK
  2. XANAX [Suspect]
     Indication: ANXIETY
     Dosage: UNK, daily as needed
  3. ESCITALOPRAM OXALATE [Suspect]
     Indication: DEPRESSION
     Dosage: 40 mg, daily
     Dates: end: 2011
  4. KLONOPIN [Concomitant]
     Indication: FATIGUE
     Dosage: half a tablet of 2mg daily
  5. KLONOPIN [Concomitant]
     Indication: SLEEP DISORDER
  6. RITALIN [Concomitant]
     Indication: FATIGUE
     Dosage: 20mg in morning and 10mg at noon
  7. RITALIN [Concomitant]
     Indication: SLEEP DISORDER
  8. OXYIR [Concomitant]
     Indication: ARTHRALGIA
     Dosage: 5 mg, as needed
  9. OXYIR [Concomitant]
     Indication: MOVEMENT DISORDER

REACTIONS (5)
  - Paralysis [Unknown]
  - Infection protozoal [Unknown]
  - Pain [Unknown]
  - Blood cholesterol decreased [Unknown]
  - Drug ineffective [Unknown]
